FAERS Safety Report 20942710 (Version 3)
Quarter: 2022Q2

REPORT INFORMATION
  Report Type: Spontaneous
  Country: US (occurrence: US)
  Receive Date: 20220610
  Receipt Date: 20220630
  Transmission Date: 20220721
  Serious: No
  Sender: FDA-Public Use
  Company Number: US-UNITED THERAPEUTICS-UNT-2022-012547

PATIENT
  Sex: Female

DRUGS (4)
  1. REMODULIN [Suspect]
     Active Substance: TREPROSTINIL
     Indication: Pulmonary arterial hypertension
     Dosage: UNK, CONTINUING
     Route: 058
     Dates: start: 20181105
  2. REMODULIN [Suspect]
     Active Substance: TREPROSTINIL
     Dosage: 0.0807 ?G/KG, CONTINUING [PUMP RATE 0.032ML/HR]
     Route: 058
  3. AMBRISENTAN [Concomitant]
     Active Substance: AMBRISENTAN
     Indication: Pulmonary hypertension
     Dosage: 10 MG, QD
     Route: 065
     Dates: start: 201206
  4. ADEMPAS [Concomitant]
     Active Substance: RIOCIGUAT
     Indication: Pulmonary hypertension
     Dosage: 2.5 MG, TID
     Route: 065
     Dates: start: 201601

REACTIONS (11)
  - Infusion site pain [Recovered/Resolved]
  - Infusion site mass [Not Recovered/Not Resolved]
  - Infusion site induration [Not Recovered/Not Resolved]
  - COVID-19 [Unknown]
  - Device maintenance issue [Unknown]
  - Decreased appetite [Unknown]
  - Device dislocation [Unknown]
  - Diarrhoea [Unknown]
  - Pain in jaw [Unknown]
  - Infusion site rash [Unknown]
  - Infusion site bruising [Unknown]
